FAERS Safety Report 17192598 (Version 1)
Quarter: 2019Q4

REPORT INFORMATION
  Report Type: Spontaneous
  Country: US (occurrence: US)
  Receive Date: 20191223
  Receipt Date: 20191223
  Transmission Date: 20200122
  Serious: Yes (Disabling)
  Sender: FDA-Public Use
  Company Number: US-PFIZER INC-2019545779

PATIENT
  Age: 53 Year
  Sex: Male
  Weight: 109.7 kg

DRUGS (3)
  1. ALPRAZOLAM. [Suspect]
     Active Substance: ALPRAZOLAM
     Indication: ASTHMA
  2. ALPRAZOLAM. [Suspect]
     Active Substance: ALPRAZOLAM
     Indication: ANXIETY
  3. ALPRAZOLAM. [Suspect]
     Active Substance: ALPRAZOLAM
     Indication: PANIC ATTACK
     Dosage: 1 MG, AS NEEDED[1 1MG TABLET BY MOUTH FOUR TIMES PER DAY AS NEEDED]
     Route: 048

REACTIONS (9)
  - Road traffic accident [Unknown]
  - Poor quality product administered [Unknown]
  - Fatigue [Unknown]
  - Lower limb fracture [Unknown]
  - Drug ineffective [Unknown]
  - Product physical issue [Unknown]
  - Product solubility abnormal [Unknown]
  - Hypoaesthesia [Unknown]
  - Weight increased [Unknown]
